FAERS Safety Report 10742172 (Version 1)
Quarter: 2015Q1

REPORT INFORMATION
  Report Type: Report from Study
  Country: US (occurrence: US)
  Receive Date: 20150127
  Receipt Date: 20150127
  Transmission Date: 20150721
  Serious: No
  Sender: FDA-Public Use
  Company Number: US-AMGEN-USASL2015005875

PATIENT
  Age: 54 Year
  Sex: Female

DRUGS (1)
  1. ENBREL [Suspect]
     Active Substance: ETANERCEPT
     Indication: PSORIASIS
     Dosage: 50 MG, UNK
     Route: 065
     Dates: start: 20140222

REACTIONS (7)
  - Feeling abnormal [Unknown]
  - Sensory disturbance [Unknown]
  - Fatigue [Unknown]
  - Dizziness [Unknown]
  - Eye disorder [Unknown]
  - Musculoskeletal pain [Unknown]
  - Fall [Unknown]

NARRATIVE: CASE EVENT DATE: 201411
